FAERS Safety Report 11990429 (Version 1)
Quarter: 2016Q1

REPORT INFORMATION
  Report Type: Spontaneous
  Country: VN (occurrence: VN)
  Receive Date: 20160202
  Receipt Date: 20160202
  Transmission Date: 20160526
  Serious: Yes (Hospitalization)
  Sender: FDA-Public Use
  Company Number: VN-009507513-1601VNM011649

PATIENT
  Age: 88 Year
  Sex: Male

DRUGS (1)
  1. HYZAAR [Suspect]
     Active Substance: HYDROCHLOROTHIAZIDE\LOSARTAN POTASSIUM
     Dosage: ONE TABLET ONCE A DAY
     Route: 048
     Dates: start: 20150620

REACTIONS (1)
  - Rheumatic disorder [Recovering/Resolving]
